FAERS Safety Report 14596388 (Version 2)
Quarter: 2019Q1

REPORT INFORMATION
  Report Type: Spontaneous
  Country: DE (occurrence: DE)
  Receive Date: 20180303
  Receipt Date: 20190213
  Transmission Date: 20190417
  Serious: Yes (Hospitalization, Other)
  Sender: FDA-Public Use
  Company Number: DE-AUROBINDO-AUR-APL-2018-011136

PATIENT

DRUGS (33)
  1. ENTRESTO [Suspect]
     Active Substance: SACUBITRIL\VALSARTAN
     Dosage: 200 MILLIGRAM, ONCE A DAY
     Route: 048
     Dates: start: 20160727
  2. BISOPROLOL FUMARATE. [Concomitant]
     Active Substance: BISOPROLOL FUMARATE
     Indication: CARDIAC FAILURE CONGESTIVE
     Dosage: 1.25 MILLIGRAM, ONCE A DAY
     Route: 048
     Dates: start: 20161102
  3. CARVEDILOL. [Concomitant]
     Active Substance: CARVEDILOL
     Dosage: 37.5 MILLIGRAM, ONCE A DAY
     Route: 048
  4. TORASEMIDE [Concomitant]
     Active Substance: TORSEMIDE
     Indication: CARDIAC FAILURE CHRONIC
     Dosage: 10 MILLIGRAM, ONCE A DAY
     Route: 048
     Dates: start: 20170411
  5. SALBUTAMOL-RATIOPHARM N [Concomitant]
     Indication: CHRONIC OBSTRUCTIVE PULMONARY DISEASE
     Dosage: 2 DOSAGE FORM, ONCE A DAY
     Route: 055
     Dates: start: 20161014
  6. AMLODIPINE [Concomitant]
     Active Substance: AMLODIPINE BESYLATE
     Indication: HYPERTENSION
     Dosage: DAILY DOSE: 1 DF DOSAGE FORM EVERY DAY
     Route: 065
  7. SPIRONOLACTONE. [Concomitant]
     Active Substance: SPIRONOLACTONE
     Indication: CARDIAC FAILURE CHRONIC
     Dosage: 25 MILLIGRAM, ONCE A DAY
     Route: 048
     Dates: start: 20161002
  8. CARVEDILOL HEXAL [Suspect]
     Active Substance: CARVEDILOL
     Indication: SINUS BRADYCARDIA
     Dosage: 1 DOSAGE FORM, ONCE A DAY
     Route: 048
     Dates: start: 20161019, end: 20161101
  9. BISOPROLOL RATIOPHARM [Concomitant]
     Active Substance: BISOPROLOL
     Indication: PRODUCT USED FOR UNKNOWN INDICATION
     Dosage: 0.5 DOSAGE FORM, ONCE A DAY
     Route: 065
  10. ALLOPURINOL HEXAL [Concomitant]
     Active Substance: ALLOPURINOL
     Indication: PRODUCT USED FOR UNKNOWN INDICATION
     Dosage: UNK
     Route: 065
  11. ENTRESTO [Suspect]
     Active Substance: SACUBITRIL\VALSARTAN
     Indication: CARDIAC FAILURE CHRONIC
     Dosage: 200 MILLIGRAM, DAILY
     Route: 048
     Dates: start: 20161002
  12. ENTRESTO [Suspect]
     Active Substance: SACUBITRIL\VALSARTAN
     Dosage: 100 MILLIGRAM, ONCE A DAY, 50 MG (24/26 MG), BID
     Route: 048
     Dates: start: 20160311
  13. SIMVASTATIN - 1 A PHARMA [Concomitant]
     Indication: CORONARY ARTERY DISEASE
     Dosage: 1 DOSAGE FORM, ONCE A DAY
     Route: 065
  14. ELIQUIS [Concomitant]
     Active Substance: APIXABAN
     Indication: ATRIAL FIBRILLATION
     Dosage: DAILY DOSE: 1 DF DOSAGE FORM EVERY DAY
     Route: 065
  15. CARVEDILOL. [Concomitant]
     Active Substance: CARVEDILOL
     Indication: CARDIAC FAILURE
     Dosage: 25 MILLIGRAM, ONCE A DAY
     Route: 048
     Dates: start: 20170111, end: 20170321
  16. TORASEMIDE [Concomitant]
     Active Substance: TORSEMIDE
     Dosage: 15 MILLIGRAM, ONCE A DAY
     Route: 048
     Dates: start: 20161014, end: 20161014
  17. TORASEMIDE [Concomitant]
     Active Substance: TORSEMIDE
     Dosage: 10 MILLIGRAM, ONCE A DAY
     Route: 048
     Dates: start: 20161017, end: 20161017
  18. TORASEMIDE [Concomitant]
     Active Substance: TORSEMIDE
     Dosage: 20 MILLIGRAM, ONCE A DAY
     Route: 048
     Dates: start: 20161002
  19. ASPIRIN. [Concomitant]
     Active Substance: ASPIRIN
     Indication: CORONARY ARTERY DISEASE
     Dosage: 1 DOSAGE FORM, ONCE A DAY
     Route: 065
  20. SPIRIVA [Concomitant]
     Active Substance: TIOTROPIUM BROMIDE MONOHYDRATE
     Indication: CHRONIC OBSTRUCTIVE PULMONARY DISEASE
     Dosage: 1 DOSAGE FORM, ONCE A DAY
     Route: 065
     Dates: start: 20161018
  21. CARVEDILOL. [Concomitant]
     Active Substance: CARVEDILOL
     Dosage: 25 MILLIGRAM, ONCE A DAY
     Route: 048
     Dates: start: 20161024, end: 20161101
  22. FURORESE [Concomitant]
     Active Substance: FUROSEMIDE
     Indication: PRODUCT USED FOR UNKNOWN INDICATION
     Dosage: 2 DOSAGE FORM, ONCE A DAY
     Route: 065
  23. AMLODIPIN [Concomitant]
     Active Substance: AMLODIPINE BESYLATE
     Indication: CARDIAC FAILURE CHRONIC
     Dosage: 5 MILLIGRAM, ONCE A DAY
     Route: 048
  24. TORASEMID HEXAL [Concomitant]
     Active Substance: TORSEMIDE
     Indication: CARDIAC FAILURE
     Dosage: 2 DOSAGE FORM, ONCE A DAY
     Route: 065
     Dates: start: 20161018, end: 20161027
  25. AMIODARONE [Suspect]
     Active Substance: AMIODARONE
     Indication: PRODUCT USED FOR UNKNOWN INDICATION
     Dosage: UNK
     Route: 065
  26. CARVEDILOL. [Concomitant]
     Active Substance: CARVEDILOL
     Dosage: 12.5 MILLIGRAM, ONCE A DAY
     Route: 048
     Dates: end: 20161023
  27. TORASEMIDE [Concomitant]
     Active Substance: TORSEMIDE
     Dosage: 20 MILLIGRAM, ONCE A DAY
     Route: 048
     Dates: start: 20161018
  28. ALDACTONE [Concomitant]
     Active Substance: SPIRONOLACTONE
     Indication: CARDIAC FAILURE
     Dosage: 1 DOSAGE FORM, ONCE A DAY
     Route: 065
  29. ENTRESTO [Suspect]
     Active Substance: SACUBITRIL\VALSARTAN
     Dosage: 400 MILLIGRAM, ONCE A DAY
     Route: 048
     Dates: start: 20160504
  30. CARVEDILOL HEXAL [Suspect]
     Active Substance: CARVEDILOL
     Indication: CARDIAC FAILURE
     Dosage: 1.5 DOSAGE FORM, DAILY
     Route: 048
     Dates: start: 20160101, end: 20161018
  31. CARVEDILOL HEXAL [Suspect]
     Active Substance: CARVEDILOL
     Dosage: 1.5 DOSAGE FORM, ONCE A DAY
     Route: 048
     Dates: start: 2016, end: 20161018
  32. CARVEDILOL. [Concomitant]
     Active Substance: CARVEDILOL
     Indication: CARDIAC FAILURE CHRONIC
     Dosage: 12.5 MILLIGRAM, ONCE A DAY
     Route: 048
     Dates: start: 20170323
  33. URAPIDIL [Concomitant]
     Active Substance: URAPIDIL
     Indication: PULMONARY OEDEMA
     Dosage: 10 MILLIGRAM, ONCE A DAY
     Route: 042
     Dates: start: 20161215, end: 20161215

REACTIONS (23)
  - Sinus bradycardia [Recovered/Resolved]
  - Tachypnoea [Unknown]
  - Blood potassium decreased [Recovered/Resolved]
  - Benign prostatic hyperplasia [Not Recovered/Not Resolved]
  - Dyspnoea [Unknown]
  - Blood pressure increased [Unknown]
  - Pleural effusion [Unknown]
  - Atelectasis [Unknown]
  - Pulmonary oedema [Recovered/Resolved]
  - Blood creatinine increased [Unknown]
  - Electrocardiogram QT prolonged [Recovered/Resolved]
  - Hypotension [Unknown]
  - Hypothyroidism [Recovering/Resolving]
  - Oedema peripheral [Not Recovered/Not Resolved]
  - Acute kidney injury [Not Recovered/Not Resolved]
  - White blood cell count increased [Not Recovered/Not Resolved]
  - Hypokalaemia [Recovered/Resolved]
  - Cardiac failure [Recovered/Resolved]
  - Wheezing [Unknown]
  - Respiratory failure [Recovered/Resolved]
  - Dizziness [Not Recovered/Not Resolved]
  - Pericardial effusion [Unknown]
  - Urinary tract infection [Recovering/Resolving]

NARRATIVE: CASE EVENT DATE: 20161018
